FAERS Safety Report 12713720 (Version 1)
Quarter: 2016Q3

REPORT INFORMATION
  Report Type: Report from Study
  Country: AR (occurrence: AR)
  Receive Date: 20160904
  Receipt Date: 20160904
  Transmission Date: 20161109
  Serious: Yes (Life-Threatening, Hospitalization, Other)
  Sender: FDA-Public Use
  Company Number: AR-ABBVIE-16K-007-1692641-00

PATIENT
  Age: 42 Year
  Sex: Female

DRUGS (4)
  1. ALPLAX [Concomitant]
     Indication: PRODUCT USED FOR UNKNOWN INDICATION
  2. TOTAL MAGNESIANO [Concomitant]
     Indication: PRODUCT USED FOR UNKNOWN INDICATION
     Dosage: 1 WITH EACH OF THE 4 MEALS
  3. ARAMIX [Concomitant]
     Indication: PRODUCT USED FOR UNKNOWN INDICATION
  4. HUMIRA [Suspect]
     Active Substance: ADALIMUMAB
     Indication: ANKYLOSING SPONDYLITIS
     Route: 058
     Dates: start: 20150701

REACTIONS (5)
  - Suicide attempt [Unknown]
  - Hypocalcaemia [Not Recovered/Not Resolved]
  - Anaemia [Unknown]
  - Syncope [Not Recovered/Not Resolved]
  - Papillary thyroid cancer [Not Recovered/Not Resolved]

NARRATIVE: CASE EVENT DATE: 20160726
